FAERS Safety Report 19992836 (Version 1)
Quarter: 2021Q4

REPORT INFORMATION
  Report Type: Spontaneous
  Country: US (occurrence: US)
  Receive Date: 20211026
  Receipt Date: 20211026
  Transmission Date: 20220304
  Serious: No
  Sender: FDA-Public Use
  Company Number: US-MERCK HEALTHCARE KGAA-9274515

PATIENT

DRUGS (1)
  1. REBIF [Suspect]
     Active Substance: INTERFERON BETA-1A
     Indication: Multiple sclerosis

REACTIONS (1)
  - Lethargy [Unknown]
